FAERS Safety Report 6776188-4 (Version None)
Quarter: 2010Q2

REPORT INFORMATION
  Report Type: 
  Country: None (occurrence: None)
  Receive Date: 20100617
  Receipt Date: 20100613
  Transmission Date: 20101027
  Serious: Yes (Life-Threatening, Hospitalization)
  Sender: FDA-Public Use
  Company Number: DE-AMGEN-UK409523

PATIENT
  Sex: Male
  Weight: 65 kg

DRUGS (12)
  1. NEUPOGEN [Suspect]
     Indication: BLOOD STEM CELL HARVEST
     Route: 058
     Dates: start: 20100221, end: 20100310
  2. MEROPENEM [Concomitant]
  3. TEICOPLANIN [Concomitant]
  4. PANTOZOL [Concomitant]
  5. TORSEMIDE [Concomitant]
  6. SIMVASTATIN [Concomitant]
  7. ASPIRIN [Concomitant]
  8. METOPROLOL [Concomitant]
  9. CLOPIDOGREL [Concomitant]
  10. ENOXAPARIN SODIUM [Concomitant]
  11. RAMIPRIL [Concomitant]
  12. HYDROCHLOROTHIAZIDE [Concomitant]

REACTIONS (2)
  - ACUTE CORONARY SYNDROME [None]
  - CORONARY ARTERY DISEASE [None]
